FAERS Safety Report 10860547 (Version 2)
Quarter: 2015Q1

REPORT INFORMATION
  Report Type: Report from Study
  Country: JP (occurrence: JP)
  Receive Date: 20150223
  Receipt Date: 20150330
  Transmission Date: 20150721
  Serious: Yes (Other)
  Sender: FDA-Public Use
  Company Number: JP-009507513-1502JPN009146

PATIENT
  Age: 60 Year
  Sex: Female
  Weight: 53 kg

DRUGS (11)
  1. PEGINTRON [Suspect]
     Active Substance: PEGINTERFERON ALFA-2B
     Indication: CHRONIC HEPATITIS C
     Dosage: 1 MICROGRAM PER KILOGRAM, (1 IN 1 WEEK)
     Route: 058
     Dates: start: 20140304, end: 20140624
  2. RIBAVIRIN. [Suspect]
     Active Substance: RIBAVIRIN
     Indication: CHRONIC HEPATITIS C
     Dosage: 400 MG, (1 IN 1 DAY)
     Route: 048
     Dates: start: 20140304, end: 20140415
  3. SIMEPREVIR [Suspect]
     Active Substance: SIMEPREVIR
     Dosage: UNK
  4. RIBAVIRIN. [Suspect]
     Active Substance: RIBAVIRIN
     Dosage: 200 MG, (1 IN 1 DAY)
     Route: 048
     Dates: start: 20140416, end: 20140819
  5. PEGINTRON [Suspect]
     Active Substance: PEGINTERFERON ALFA-2B
     Dosage: 0.5 MICROGRAM PER KILOGRAM, (1 IN 1 WEEK)
     Route: 058
     Dates: start: 20140701, end: 20140701
  6. PEGINTRON [Suspect]
     Active Substance: PEGINTERFERON ALFA-2B
     Dosage: 1 MICROGRAM PER KILOGRAM, (1 IN 1 WEEK)
     Route: 058
     Dates: start: 20140708, end: 20140708
  7. PEGINTRON [Suspect]
     Active Substance: PEGINTERFERON ALFA-2B
     Dosage: 0.5 MICROGRAM PER KILOGRAM, (1 IN 1 WEEK)
     Route: 058
     Dates: start: 20140715, end: 20140715
  8. SIMEPREVIR [Suspect]
     Active Substance: SIMEPREVIR
     Indication: CHRONIC HEPATITIS C
     Dosage: 100 MG, (1 IN 1 DAY)
     Route: 048
     Dates: start: 20140304, end: 20140526
  9. NEXIUM [Concomitant]
     Active Substance: ESOMEPRAZOLE MAGNESIUM
     Indication: GASTROOESOPHAGEAL REFLUX DISEASE
     Dosage: 20 MG, (1 IN 1 DAY)
     Route: 048
     Dates: end: 20140819
  10. PEGINTRON [Suspect]
     Active Substance: PEGINTERFERON ALFA-2B
     Dosage: 1 MICROGRAM PER KILOGRAM, (1 IN 1 WEEK)
     Route: 058
     Dates: start: 20140722, end: 20140822
  11. RUEFRIEN [Concomitant]
     Indication: GASTRITIS
     Dosage: 1.5 G, (1 IN 1 DAY)
     Route: 048
     Dates: end: 20140819

REACTIONS (7)
  - Malaise [Recovering/Resolving]
  - Platelet count decreased [Recovered/Resolved]
  - Headache [Recovering/Resolving]
  - Anaemia [Recovered/Resolved]
  - Platelet count decreased [Recovered/Resolved]
  - Drug ineffective [Unknown]
  - Drug ineffective [Unknown]

NARRATIVE: CASE EVENT DATE: 20140304
